FAERS Safety Report 6601228-2 (Version None)
Quarter: 2010Q1

REPORT INFORMATION
  Report Type: 
  Country: None (occurrence: None)
  Receive Date: 20100217
  Receipt Date: 20100129
  Transmission Date: 20100710
  Serious: Yes (Death)
  Sender: FDA-Public Use
  Company Number: 2009AP001222

PATIENT
  Age: 56 Year
  Sex: Male

DRUGS (1)
  1. CITALOPRAM HYDROBROMIDE [Suspect]
     Indication: DEPRESSION
     Dosage: 40 MG; PO, 20 MG; PO
     Route: 048
     Dates: start: 20090102

REACTIONS (3)
  - COMPLETED SUICIDE [None]
  - PARAESTHESIA [None]
  - POOR QUALITY SLEEP [None]
